FAERS Safety Report 5295086-9 (Version None)
Quarter: 2007Q1

REPORT INFORMATION
  Report Type: 
  Country: None (occurrence: None)
  Receive Date: 20070201
  Receipt Date: 20061019
  Transmission Date: 20070707
  Serious: No
  Sender: FDA-Public Use
  Company Number: 2006PV023571

PATIENT
  Age: 70 Year
  Sex: Female
  Weight: 97.0698 kg

DRUGS (3)
  1. BYETTA [Suspect]
     Indication: DIABETES MELLITUS NON-INSULIN-DEPENDENT
     Dosage: 5 MCG; BID;SC
     Route: 058
     Dates: start: 20060920
  2. LANTUS [Concomitant]
  3. GLUCOVANCE [Concomitant]

REACTIONS (5)
  - BLOOD GLUCOSE INCREASED [None]
  - HYPERHIDROSIS [None]
  - NERVOUSNESS [None]
  - TREMOR [None]
  - VOMITING [None]
